FAERS Safety Report 4919547-4 (Version None)
Quarter: 2006Q1

REPORT INFORMATION
  Report Type: 
  Country: None (occurrence: None)
  Receive Date: 20060222
  Receipt Date: 20060209
  Transmission Date: 20060701
  Serious: Yes (Hospitalization)
  Sender: FDA-Public Use
  Company Number: US-MERCK-0602USA03613

PATIENT
  Age: 66 Year
  Sex: Female

DRUGS (9)
  1. VIOXX [Suspect]
     Route: 048
     Dates: start: 20010101
  2. GLUCOPHAGE [Concomitant]
     Route: 048
  3. DILTIAZEM HYDROCHLORIDE [Concomitant]
     Route: 048
  4. MICRO-K [Concomitant]
     Route: 048
  5. LANOXIN [Concomitant]
     Route: 048
  6. SYNTHROID [Concomitant]
     Route: 048
  7. LASIX [Concomitant]
     Route: 048
  8. ATACAND [Concomitant]
     Route: 048
  9. NITROGLYCERIN [Concomitant]
     Route: 048

REACTIONS (13)
  - ANAEMIA [None]
  - BRADYCARDIA [None]
  - CEREBRAL INFARCTION [None]
  - CHEST PAIN [None]
  - CHRONIC OBSTRUCTIVE PULMONARY DISEASE [None]
  - DELIRIUM [None]
  - HYPERKALAEMIA [None]
  - HYPOTENSION [None]
  - LOBAR PNEUMONIA [None]
  - MIGRAINE [None]
  - RENAL FAILURE ACUTE [None]
  - RESPIRATORY DISTRESS [None]
  - THERAPEUTIC AGENT TOXICITY [None]
